FAERS Safety Report 7736154-9 (Version None)
Quarter: 2011Q3

REPORT INFORMATION
  Report Type: 
  Country: None (occurrence: None)
  Receive Date: 20110908
  Receipt Date: 20110908
  Transmission Date: 20111222
  Serious: Yes (Death)
  Sender: FDA-Public Use
  Company Number: BE-JNJFOC-20110900940

PATIENT
  Age: 55 Year
  Sex: Male

DRUGS (20)
  1. VINCRISTINE [Suspect]
     Route: 065
  2. VINCRISTINE [Suspect]
     Route: 065
  3. DEXAMETHASONE [Suspect]
     Indication: MULTIPLE MYELOMA
     Route: 065
  4. DOXORUBICIN HYDROCHLORIDE [Suspect]
     Route: 042
  5. DEXAMETHASONE [Suspect]
     Route: 065
  6. DEXAMETHASONE [Suspect]
     Route: 065
  7. DOXORUBICIN HYDROCHLORIDE [Suspect]
     Route: 042
  8. DOXORUBICIN HYDROCHLORIDE [Suspect]
     Indication: MULTIPLE MYELOMA
     Route: 042
  9. DOXORUBICIN HYDROCHLORIDE [Suspect]
     Route: 042
  10. VINCRISTINE [Suspect]
     Route: 065
  11. VINCRISTINE [Suspect]
     Route: 065
  12. DEXAMETHASONE [Suspect]
     Route: 065
  13. VINCRISTINE [Suspect]
     Route: 065
  14. BORTEZOMIB [Suspect]
     Indication: MULTIPLE MYELOMA
     Route: 065
  15. VINCRISTINE [Suspect]
     Indication: MULTIPLE MYELOMA
     Route: 065
  16. DEXAMETHASONE [Suspect]
     Route: 065
  17. DOXORUBICIN HYDROCHLORIDE [Suspect]
     Route: 042
  18. DOXORUBICIN HYDROCHLORIDE [Suspect]
     Route: 042
  19. DEXAMETHASONE [Suspect]
     Route: 065
  20. DEXAMETHASONE [Suspect]
     Route: 065

REACTIONS (3)
  - MULTIPLE MYELOMA [None]
  - PARAPARESIS [None]
  - DIPLOPIA [None]
